FAERS Safety Report 8543512-1 (Version None)
Quarter: 2012Q3

REPORT INFORMATION
  Report Type: 
  Country: None (occurrence: None)
  Receive Date: 20120727
  Receipt Date: 20120723
  Transmission Date: 20120928
  Serious: Yes (Hospitalization)
  Sender: FDA-Public Use
  Company Number: PHHY2012BR063788

PATIENT
  Age: 65 Year
  Sex: Female

DRUGS (2)
  1. FORMOTEROL FUMARATE [Suspect]
     Dosage: 1 DF (12/400 MG), UNK
  2. DIOVAN [Suspect]
     Dosage: UNK UKN, UNK

REACTIONS (2)
  - BLOOD PRESSURE INCREASED [None]
  - ASTHMA [None]
